FAERS Safety Report 16102834 (Version 1)
Quarter: 2019Q1

REPORT INFORMATION
  Report Type: Other
  Country: DE (occurrence: DE)
  Receive Date: 20190321
  Receipt Date: 20190321
  Transmission Date: 20190418
  Serious: Yes (Hospitalization, Other)
  Sender: FDA-Public Use
  Company Number: DE-CELLTRION INC.-2019DE019093

PATIENT

DRUGS (2)
  1. BENEPALI [Suspect]
     Active Substance: ETANERCEPT
     Indication: RHEUMATOID ARTHRITIS
     Dosage: 50 MG
     Route: 065
     Dates: start: 201805, end: 201807
  2. RITUXIMAB (UNKNOWN) [Suspect]
     Active Substance: RITUXIMAB
     Indication: RHEUMATOID ARTHRITIS
     Dosage: 1000 MG
     Route: 065
     Dates: start: 201705, end: 201711

REACTIONS (4)
  - Bronchitis [Recovered/Resolved]
  - Upper respiratory tract infection [Recovered/Resolved]
  - Pneumonia [Recovered/Resolved]
  - Pulmonary fibrosis [Recovered/Resolved]

NARRATIVE: CASE EVENT DATE: 20180103
